FAERS Safety Report 10775076 (Version 1)
Quarter: 2015Q1

REPORT INFORMATION
  Report Type: Report from Study
  Country: US (occurrence: US)
  Receive Date: 20150209
  Receipt Date: 20150209
  Transmission Date: 20150721
  Serious: Yes (Other)
  Sender: FDA-Public Use
  Company Number: US-JNJFOC-20150121384

PATIENT
  Sex: Female
  Weight: 70.31 kg

DRUGS (8)
  1. CALCIUM WITH VITAMIN D [Concomitant]
     Active Substance: CALCIUM\VITAMIN D
     Route: 048
     Dates: start: 20141001
  2. GELATIN [Concomitant]
     Active Substance: GELATIN
     Indication: PRURITUS
     Route: 048
     Dates: start: 20141001
  3. MULTIVITAMINES [Concomitant]
     Active Substance: VITAMINS
     Route: 048
     Dates: start: 20141001
  4. STELARA [Suspect]
     Active Substance: USTEKINUMAB
     Indication: PSORIASIS
     Route: 058
     Dates: start: 20110101
  5. BENADRYL [Concomitant]
     Active Substance: DIPHENHYDRAMINE HYDROCHLORIDE
     Indication: SLEEP DISORDER
     Route: 048
     Dates: start: 20141001, end: 20150126
  6. CAFFEINE. [Concomitant]
     Active Substance: CAFFEINE
     Route: 048
     Dates: start: 20141001
  7. PEPCID [Concomitant]
     Active Substance: FAMOTIDINE
     Indication: DYSPEPSIA
     Route: 048
     Dates: start: 20141209
  8. TYLENOL [Concomitant]
     Active Substance: ACETAMINOPHEN
     Indication: HEADACHE
     Route: 048
     Dates: start: 20141001

REACTIONS (2)
  - Salpingectomy [Unknown]
  - Oophorectomy [Unknown]

NARRATIVE: CASE EVENT DATE: 2013
